FAERS Safety Report 5354247-0 (Version None)
Quarter: 2007Q2

REPORT INFORMATION
  Report Type: 
  Country: None (occurrence: None)
  Receive Date: 20070612
  Receipt Date: 20070531
  Transmission Date: 20071010
  Serious: Yes (Hospitalization)
  Sender: FDA-Public Use
  Company Number: US-ELI_LILLY_AND_COMPANY-US200703006286

PATIENT
  Age: 64 Year
  Sex: Female
  Weight: 106.58 kg

DRUGS (10)
  1. BYETTA [Suspect]
     Indication: DIABETES MELLITUS INSULIN-DEPENDENT
     Dosage: 5 UG, 2/D
     Route: 058
     Dates: start: 20061201
  2. GLYNASE [Concomitant]
     Indication: DIABETES MELLITUS
     Dosage: 3 MG, 2/D
     Dates: start: 20061201
  3. AMARYL [Concomitant]
     Indication: DIABETES MELLITUS
     Dosage: UNK, UNKNOWN
     Dates: start: 20050101, end: 20061201
  4. LANTUS [Concomitant]
     Indication: DIABETES MELLITUS
     Dosage: 40 U, EACH EVENING
  5. AVALIDE [Concomitant]
     Indication: CARDIAC DISORDER
     Dosage: 0.5 UNK, DAILY (1/D)
  6. MONOPRIL [Concomitant]
     Dosage: 10 MG, UNKNOWN
     Dates: end: 20070314
  7. MONOPRIL [Concomitant]
     Dosage: 5 MG, UNKNOWN
     Dates: start: 20070314
  8. VYTORIN [Concomitant]
     Indication: BLOOD CHOLESTEROL
     Dosage: UNK, DAILY (1/D)
     Dates: start: 20050101
  9. ASPIRIN [Concomitant]
     Indication: CARDIAC DISORDER
     Dosage: 325 MG, DAILY (1/D)
     Dates: start: 20060101
  10. VITAMIN B6 [Concomitant]
     Dosage: UNK, UNKNOWN

REACTIONS (9)
  - BRADYCARDIA [None]
  - BUNDLE BRANCH BLOCK RIGHT [None]
  - DIZZINESS [None]
  - FEELING JITTERY [None]
  - HEADACHE [None]
  - MALAISE [None]
  - PRESYNCOPE [None]
  - TACHYCARDIA [None]
  - TREMOR [None]
